FAERS Safety Report 5389528-8 (Version None)
Quarter: 2007Q3

REPORT INFORMATION
  Report Type: 
  Country: None (occurrence: None)
  Receive Date: 20070717
  Receipt Date: 20070706
  Transmission Date: 20080115
  Serious: Yes (Other)
  Sender: FDA-Public Use
  Company Number: CA-PFIZER INC-2007043470

PATIENT
  Sex: Male

DRUGS (9)
  1. VIAGRA [Suspect]
     Route: 048
     Dates: start: 20060101, end: 20070101
  2. SYNTHROID [Concomitant]
     Route: 048
  3. LOSEC [Concomitant]
     Route: 048
  4. COD LIVER OIL/TOCOPHERYL ACETATE [Concomitant]
     Route: 048
  5. VITAMIN E [Concomitant]
  6. SELENIUM SULFIDE [Concomitant]
  7. CALCIUM CHLORIDE [Concomitant]
  8. VITAMIN D [Concomitant]
  9. ALL OTHER THERAPEUTIC PRODUCTS [Concomitant]

REACTIONS (3)
  - DRUG INEFFECTIVE [None]
  - EYE PAIN [None]
  - FLUSHING [None]
